FAERS Safety Report 23444436 (Version 1)
Quarter: 2024Q1

REPORT INFORMATION
  Report Type: Spontaneous
  Country: US (occurrence: None)
  Receive Date: 20240125
  Receipt Date: 20240125
  Transmission Date: 20240409
  Serious: Yes (Life-Threatening, Hospitalization, Disabling)
  Sender: FDA-Public Use
  Company Number: None

PATIENT
  Age: 39 Year
  Sex: Female
  Weight: 80.74 kg

DRUGS (1)
  1. HERBALS\MITRAGYNINE [Suspect]
     Active Substance: HERBALS\MITRAGYNINE
     Indication: Pain management
     Dosage: OTHER STRENGTH : 4 OZ;?
     Dates: start: 20230401, end: 20240101

REACTIONS (6)
  - Product advertising issue [None]
  - Product communication issue [None]
  - Victim of crime [None]
  - Product formulation issue [None]
  - Product use in unapproved indication [None]
  - Drug dependence [None]

NARRATIVE: CASE EVENT DATE: 20240106
